FAERS Safety Report 10065459 (Version 2)
Quarter: 2014Q2

REPORT INFORMATION
  Report Type: Report from Study
  Country: DE (occurrence: DE)
  Receive Date: 20140408
  Receipt Date: 20140414
  Transmission Date: 20141212
  Serious: Yes (Other)
  Sender: FDA-Public Use
  Company Number: PHHY2014DE041662

PATIENT
  Sex: Female
  Weight: 77 kg

DRUGS (3)
  1. FTY 720 [Suspect]
     Indication: MULTIPLE SCLEROSIS
     Dosage: 0.5 MG, QD
     Route: 048
     Dates: start: 20130726
  2. FTY 720 [Suspect]
     Dosage: 0.5 MG, QOD
     Route: 048
     Dates: start: 20131212
  3. GRANUFINK [Concomitant]
     Indication: MUSCULAR WEAKNESS
     Dosage: 1 DF, QD
     Route: 048
     Dates: start: 20130930

REACTIONS (3)
  - Pyrexia [Recovered/Resolved]
  - Lymphopenia [Recovered/Resolved]
  - Prescribed underdose [Unknown]
